FAERS Safety Report 4730035-0 (Version None)
Quarter: 2005Q3

REPORT INFORMATION
  Report Type: 
  Country: None (occurrence: None)
  Receive Date: 20050728
  Receipt Date: 20050728
  Transmission Date: 20060218
  Serious: Yes (Other)
  Sender: FDA-Public Use
  Company Number: None

PATIENT
  Age: 82 Year
  Sex: Female
  Weight: 81.6475 kg

DRUGS (1)
  1. ZICAM - ZICAM LLC PHOENIX, AR [Suspect]
     Dosage: ONE SPRAY PER DAY
     Route: 045

REACTIONS (3)
  - AGEUSIA [None]
  - ANOSMIA [None]
  - SIMILAR REACTION ON PREVIOUS EXPOSURE TO DRUG [None]
